FAERS Safety Report 6835200-4 (Version None)
Quarter: 2010Q3

REPORT INFORMATION
  Report Type: 
  Country: None (occurrence: None)
  Receive Date: 20100713
  Receipt Date: 20100701
  Transmission Date: 20110219
  Serious: No
  Sender: FDA-Public Use
  Company Number: 2010BI006855

PATIENT
  Sex: Female

DRUGS (4)
  1. TYSABRI [Suspect]
     Indication: MULTIPLE SCLEROSIS
     Route: 042
     Dates: start: 20100204
  2. AVONEX [Concomitant]
     Indication: MULTIPLE SCLEROSIS
     Route: 030
  3. ULTRAM [Concomitant]
     Indication: PAIN IN EXTREMITY
  4. ULTRAM [Concomitant]

REACTIONS (10)
  - FATIGUE [None]
  - HEADACHE [None]
  - LETHARGY [None]
  - MEMORY IMPAIRMENT [None]
  - NASOPHARYNGITIS [None]
  - OROPHARYNGEAL PAIN [None]
  - PAIN IN EXTREMITY [None]
  - SKIN DISCOLOURATION [None]
  - SOMNOLENCE [None]
  - UPPER RESPIRATORY TRACT CONGESTION [None]
